FAERS Safety Report 17892335 (Version 1)
Quarter: 2020Q2

REPORT INFORMATION
  Report Type: Report from Study
  Country: US (occurrence: US)
  Receive Date: 20200613
  Receipt Date: 20200613
  Transmission Date: 20200714
  Serious: Yes (Hospitalization)
  Sender: FDA-Public Use
  Company Number: US-ROCHE-2588462

PATIENT
  Age: 77 Year
  Sex: Male

DRUGS (1)
  1. COTELLIC [Suspect]
     Active Substance: COBIMETINIB
     Indication: CHRONIC MYELOMONOCYTIC LEUKAEMIA
     Dosage: TAKE 3 TABLET(S) BY MOUTH ONCE DAILY FOR THE FIRST
     Route: 048

REACTIONS (4)
  - Seizure [Unknown]
  - Diarrhoea [Unknown]
  - Off label use [Unknown]
  - Intentional product use issue [Unknown]

NARRATIVE: CASE EVENT DATE: 20200531
